FAERS Safety Report 9775532 (Version 2)
Quarter: 2014Q1

REPORT INFORMATION
  Report Type: Spontaneous
  Country: US (occurrence: US)
  Receive Date: 20131220
  Receipt Date: 20140318
  Transmission Date: 20141002
  Serious: No
  Sender: FDA-Public Use
  Company Number: US-GALDERMA-US13003624

PATIENT
  Age: 36 Year
  Sex: Female
  Weight: 63.5 kg

DRUGS (7)
  1. MIRVASO (BRIMONIDINE) TOPICAL GEL, 0.33% [Suspect]
     Indication: ROSACEA
     Dosage: 0.33%
     Route: 061
     Dates: start: 20131002, end: 20131007
  2. SYNTHROID (LEVOTHYROXINE) [Concomitant]
  3. VITAMINS [Concomitant]
  4. MONOPHASIC BIRTH CONTROL [Concomitant]
  5. REMICAIDE (INFLIXIMAB) [Concomitant]
  6. CLOBETASOL [Concomitant]
  7. METHOTREXATE [Concomitant]

REACTIONS (6)
  - Condition aggravated [Recovered/Resolved]
  - Rash macular [Recovered/Resolved]
  - Feeling hot [Recovered/Resolved]
  - Erythema [Recovered/Resolved]
  - Pain of skin [Recovered/Resolved]
  - Skin burning sensation [Recovered/Resolved]
